FAERS Safety Report 6790960-6 (Version None)
Quarter: 2010Q2

REPORT INFORMATION
  Report Type: 
  Country: None (occurrence: None)
  Receive Date: 20100624
  Receipt Date: 20100618
  Transmission Date: 20101027
  Serious: Yes (Hospitalization)
  Sender: FDA-Public Use
  Company Number: FR-MERCK-1006FRA00072

PATIENT
  Age: 80 Year
  Sex: Male

DRUGS (2)
  1. PRIMAXIN [Suspect]
     Indication: PROPHYLAXIS
     Route: 042
     Dates: start: 20090922, end: 20091005
  2. VANCOMYCIN [Suspect]
     Indication: PROPHYLAXIS
     Route: 065
     Dates: start: 20090922, end: 20091005

REACTIONS (1)
  - DRUG RASH WITH EOSINOPHILIA AND SYSTEMIC SYMPTOMS [None]
